FAERS Safety Report 6837848-X (Version None)
Quarter: 2010Q3

REPORT INFORMATION
  Report Type: 
  Country: None (occurrence: None)
  Receive Date: 20100713
  Receipt Date: 20070517
  Transmission Date: 20110219
  Serious: No
  Sender: FDA-Public Use
  Company Number: US-PFIZER INC-2007042389

PATIENT
  Sex: Female
  Weight: 54.4 kg

DRUGS (7)
  1. CHANTIX [Suspect]
     Indication: SMOKING CESSATION THERAPY
     Dates: start: 20070517
  2. PLAQUENIL [Concomitant]
  3. MORPHINE [Concomitant]
  4. HYDROCODONE BITARTRATE [Concomitant]
  5. SOMA [Concomitant]
  6. RESTORIL [Concomitant]
  7. XANAX [Concomitant]
     Indication: PANIC ATTACK

REACTIONS (3)
  - NAUSEA [None]
  - NERVOUSNESS [None]
  - PARANOIA [None]
